FAERS Safety Report 26201777 (Version 1)
Quarter: 2025Q4

REPORT INFORMATION
  Report Type: Spontaneous
  Country: US (occurrence: US)
  Receive Date: 20251226
  Receipt Date: 20251226
  Transmission Date: 20260118
  Serious: No
  Sender: UROGEN PHARMA
  Company Number: US-UROGEN PHARMA LTD.-2025-UGN-000225

PATIENT

DRUGS (4)
  1. JELMYTO [Suspect]
     Active Substance: MITOMYCIN
     Indication: Product used for unknown indication
     Dosage: 8 MILLILITER, ONCE A WEEK (INSTILLATION)
     Route: 065
     Dates: start: 20251015, end: 20251015
  2. JELMYTO [Suspect]
     Active Substance: MITOMYCIN
     Dosage: 8 MILLILITER, ONCE A WEEK (INSTILLATION)
     Route: 065
     Dates: start: 20251022, end: 20251022
  3. JELMYTO [Suspect]
     Active Substance: MITOMYCIN
     Dosage: 8 MILLILITER, ONCE A WEEK (INSTILLATION)
     Route: 065
     Dates: start: 20251029, end: 20251029
  4. JELMYTO [Suspect]
     Active Substance: MITOMYCIN
     Dosage: 8 MILLILITER, ONCE A WEEK (INSTILLATION)
     Route: 065
     Dates: start: 20251105, end: 20251105

REACTIONS (1)
  - Dysuria [Unknown]

NARRATIVE: CASE EVENT DATE: 20251105
